FAERS Safety Report 20868198 (Version 1)
Quarter: 2022Q2

REPORT INFORMATION
  Report Type: Report from Study
  Country: CA (occurrence: CA)
  Receive Date: 20220524
  Receipt Date: 20220524
  Transmission Date: 20220721
  Serious: Yes (Other)
  Sender: FDA-Public Use
  Company Number: CA-NOVARTISPH-NVSC2022CA086115

PATIENT
  Sex: Male

DRUGS (3)
  1. BACLOFEN [Suspect]
     Active Substance: BACLOFEN
     Indication: Product used for unknown indication
     Dosage: UNK
     Route: 065
  2. INDOMETHACIN [Suspect]
     Active Substance: INDOMETHACIN
     Indication: Product used for unknown indication
     Dosage: UNK UNK, TID, (50 MG)
     Route: 048
     Dates: end: 20220114
  3. PERCOCET [Concomitant]
     Active Substance: ACETAMINOPHEN\OXYCODONE HYDROCHLORIDE
     Indication: Product used for unknown indication
     Dosage: UNK
     Route: 065

REACTIONS (16)
  - Disability [Unknown]
  - Back pain [Unknown]
  - Joint stiffness [Unknown]
  - Psoriasis [Unknown]
  - Nerve injury [Unknown]
  - Migraine [Unknown]
  - Poor quality sleep [Unknown]
  - Musculoskeletal discomfort [Unknown]
  - Sacroiliac joint dysfunction [Unknown]
  - Enthesopathy [Unknown]
  - Intervertebral disc disorder [Unknown]
  - Spondylolisthesis [Unknown]
  - Claustrophobia [Unknown]
  - Dyslexia [Unknown]
  - Sacroiliitis [Unknown]
  - Drug ineffective [Unknown]
